FAERS Safety Report 20659335 (Version 1)
Quarter: 2022Q1

REPORT INFORMATION
  Report Type: Spontaneous
  Country: US (occurrence: US)
  Receive Date: 20220331
  Receipt Date: 20220331
  Transmission Date: 20220423
  Serious: No
  Sender: FDA-Public Use
  Company Number: US-PFIZER INC-2021634464

PATIENT
  Age: 85 Year
  Sex: Female

DRUGS (1)
  1. LATANOPROST [Suspect]
     Active Substance: LATANOPROST
     Indication: Glaucoma
     Dosage: 125MCG/2.5ML (ONE DROP EACH EYE AT NIGHT)

REACTIONS (2)
  - Asthenia [Unknown]
  - Gait disturbance [Unknown]
